FAERS Safety Report 24094964 (Version 1)
Quarter: 2024Q3

REPORT INFORMATION
  Report Type: Spontaneous
  Country: GB (occurrence: GB)
  Receive Date: 20240716
  Receipt Date: 20240716
  Transmission Date: 20241016
  Serious: Yes (Other)
  Sender: CHEPLAPHARM
  Company Number: GB-ROCHE-10000008784

PATIENT
  Age: 47 Year
  Sex: Female

DRUGS (6)
  1. CAPECITABINE [Suspect]
     Active Substance: CAPECITABINE
     Indication: Neoplasm malignant
     Dosage: 2ND LINE METASTATIC SYSTEMIC THERAPY
     Dates: start: 202305
  2. HERCEPTIN [Suspect]
     Active Substance: TRASTUZUMAB
     Indication: Neoplasm malignant
     Dates: end: 2012
  3. LETROZOLE [Suspect]
     Active Substance: LETROZOLE
     Indication: Neoplasm malignant
     Dosage: 1ST LINE METASTATIC SYSTEMIC THERAPY
     Dates: start: 2019
  4. PALBOCICLIB [Suspect]
     Active Substance: PALBOCICLIB
     Indication: Neoplasm malignant
     Dosage: FIRST LINE METASTATIC SYSTEMIC THERAPY
     Dates: start: 2019
  5. TAMOXIFEN [Concomitant]
     Active Substance: TAMOXIFEN
  6. FASLODEX [Concomitant]
     Active Substance: FULVESTRANT
     Dates: start: 202403

REACTIONS (2)
  - Hepatic cancer metastatic [Unknown]
  - Cancer with a high tumour mutational burden [Unknown]

NARRATIVE: CASE EVENT DATE: 20240308
